FAERS Safety Report 12757838 (Version 10)
Quarter: 2020Q2

REPORT INFORMATION
  Report Type: Spontaneous
  Country: US (occurrence: US)
  Receive Date: 20160919
  Receipt Date: 20200519
  Transmission Date: 20200713
  Serious: Yes (Other)
  Sender: FDA-Public Use
  Company Number: US-PFIZER INC-2016431684

PATIENT
  Age: 65 Year
  Sex: Female
  Weight: 94 kg

DRUGS (8)
  1. LYRICA [Suspect]
     Active Substance: PREGABALIN
     Indication: FIBROMYALGIA
     Dosage: 225 MG, DAILY [TAKE 1TAB AM 2 TABS PM]
  2. DULOXETINE. [Concomitant]
     Active Substance: DULOXETINE
     Indication: ANXIETY
  3. LYRICA [Suspect]
     Active Substance: PREGABALIN
     Indication: NEURALGIA
     Dosage: 50 MG, 2X/DAY (ONE IN THE AM AND ONE AT BEDTIME)
     Route: 048
     Dates: start: 201603, end: 2016
  4. LYRICA [Suspect]
     Active Substance: PREGABALIN
     Indication: NEURITIS
     Dosage: 75 MG, DAILY (2-3 CAPSULES BY MOUTH DAILY)
     Route: 048
  5. LYRICA [Suspect]
     Active Substance: PREGABALIN
     Indication: INTERVERTEBRAL DISC DEGENERATION
  6. DULOXETINE. [Concomitant]
     Active Substance: DULOXETINE
     Indication: PAIN
     Dosage: 60 MG, 1X/DAY
     Route: 048
     Dates: start: 201508
  7. LYRICA [Suspect]
     Active Substance: PREGABALIN
     Indication: SPINAL OSTEOARTHRITIS
  8. LYRICA [Suspect]
     Active Substance: PREGABALIN
     Indication: PAIN
     Dosage: 50 MG, 1X/DAY (IN THE MORNING, AROUND APR OR MAY2016, DOES NOT DO THIS EVERY DAY)
     Route: 048
     Dates: start: 2016

REACTIONS (14)
  - Memory impairment [Unknown]
  - Malaise [Unknown]
  - Product dose omission [Unknown]
  - Brain stem stroke [Unknown]
  - Drug ineffective [Unknown]
  - Diabetes mellitus [Unknown]
  - Intentional product use issue [Unknown]
  - Visual impairment [Not Recovered/Not Resolved]
  - Condition aggravated [Unknown]
  - Heat illness [Unknown]
  - Feeling abnormal [Unknown]
  - Cataract [Not Recovered/Not Resolved]
  - Somnolence [Recovering/Resolving]
  - Sleep disorder [Unknown]

NARRATIVE: CASE EVENT DATE: 2016
